FAERS Safety Report 25660349 (Version 1)
Quarter: 2025Q3

REPORT INFORMATION
  Report Type: Spontaneous
  Country: EU (occurrence: EU)
  Receive Date: 20250808
  Receipt Date: 20250808
  Transmission Date: 20251020
  Serious: Yes (Life-Threatening, Hospitalization)
  Sender: CALLIDITAS THERAPEUTICS AB
  Company Number: EU-STADA-01425814

PATIENT
  Age: 44 Year
  Sex: Male

DRUGS (5)
  1. BUDESONIDE [Suspect]
     Active Substance: BUDESONIDE
     Indication: IgA nephropathy
     Route: 050
     Dates: start: 20250601
  2. XIPAMIDE [Concomitant]
     Active Substance: XIPAMIDE
     Indication: Coronary artery disease
     Route: 050
     Dates: start: 2023
  3. LEVOTHYROXINE SODIUM\POTASSIUM IODIDE [Concomitant]
     Active Substance: LEVOTHYROXINE SODIUM\POTASSIUM IODIDE
     Indication: Goitre
     Route: 050
     Dates: start: 2022
  4. DAPAGLIFLOZIN [Concomitant]
     Active Substance: DAPAGLIFLOZIN
     Indication: Coronary artery disease
     Route: 050
     Dates: start: 2023
  5. FILSPARI [Concomitant]
     Active Substance: SPARSENTAN
     Indication: IgA nephropathy
     Route: 050
     Dates: start: 2024

REACTIONS (3)
  - Pulmonary embolism [Not Recovered/Not Resolved]
  - Graves^ disease [Not Recovered/Not Resolved]
  - Hyperthyroidism [Not Recovered/Not Resolved]

NARRATIVE: CASE EVENT DATE: 20250730
